FAERS Safety Report 11055717 (Version 4)
Quarter: 2015Q2

REPORT INFORMATION
  Report Type: Spontaneous
  Country: IT (occurrence: IT)
  Receive Date: 20150422
  Receipt Date: 20150622
  Transmission Date: 20150821
  Serious: Yes (Hospitalization)
  Sender: FDA-Public Use
  Company Number: IT-PFIZER INC-2015132548

PATIENT
  Age: 29 Year
  Sex: Female

DRUGS (7)
  1. LEPONEX [Interacting]
     Active Substance: CLOZAPINE
     Indication: PSYCHOTIC DISORDER
     Dosage: FROM 25 MG DAILY TO FROM 225 MG DAILY
     Route: 048
     Dates: start: 20130904, end: 20130919
  2. TAVOR [Concomitant]
     Active Substance: LORAZEPAM
     Dosage: UNK
     Route: 048
     Dates: start: 20130909, end: 20131009
  3. DIFLUCAN [Suspect]
     Active Substance: FLUCONAZOLE
     Indication: OESOPHAGEAL CANDIDIASIS
     Dosage: 100 MG, DAILY
     Route: 048
     Dates: start: 20130828, end: 20130904
  4. EN [Concomitant]
     Active Substance: DELORAZEPAM
     Dosage: 5 MG, UNK
     Route: 042
     Dates: start: 20130909, end: 20131009
  5. YASMIN [Interacting]
     Active Substance: DROSPIRENONE\ETHINYL ESTRADIOL
     Indication: OVARIAN CYST
     Dosage: 1 DF, DAILY
     Route: 048
     Dates: start: 20130807, end: 20130925
  6. DAKTARIN [Interacting]
     Active Substance: MICONAZOLE NITRATE
     Indication: OESOPHAGEAL CANDIDIASIS
     Dosage: 20 MG, 2X/DAY (FOR A WEEK)
     Route: 048
     Dates: start: 20130828, end: 20130905
  7. LEPONEX [Interacting]
     Active Substance: CLOZAPINE
     Dosage: UNK
     Route: 048
     Dates: start: 20130920, end: 20131003

REACTIONS (6)
  - Drug effect increased [Recovered/Resolved]
  - Pericarditis [Recovered/Resolved]
  - Drug interaction [Recovered/Resolved]
  - Drug level increased [Recovered/Resolved]
  - Eosinophilia [Recovered/Resolved]
  - Toxicity to various agents [Recovered/Resolved]

NARRATIVE: CASE EVENT DATE: 2013
